FAERS Safety Report 5387178-0 (Version None)
Quarter: 2007Q3

REPORT INFORMATION
  Report Type: 
  Country: None (occurrence: None)
  Receive Date: 20070711
  Receipt Date: 20070702
  Transmission Date: 20080115
  Serious: Yes (Life-Threatening, Hospitalization, Other)
  Sender: FDA-Public Use
  Company Number: 2007VX001149

PATIENT
  Age: 45 Year
  Sex: Female

DRUGS (41)
  1. PERMAX [Suspect]
     Indication: RESTLESS LEGS SYNDROME
     Dosage: SEE IMAGE
     Dates: start: 19980414, end: 19990620
  2. PERMAX [Suspect]
     Indication: RESTLESS LEGS SYNDROME
     Dosage: SEE IMAGE
     Dates: start: 19990621, end: 20020601
  3. PERMAX [Suspect]
     Indication: RESTLESS LEGS SYNDROME
     Dosage: SEE IMAGE
     Dates: start: 20040406, end: 20040101
  4. PERMAX [Suspect]
     Indication: RESTLESS LEGS SYNDROME
     Dosage: SEE IMAGE
     Dates: start: 20020602, end: 20040405
  5. NARBALEK [Concomitant]
  6. DEPO-MEDROL + LIDOCAINE [Concomitant]
  7. ULTRAM [Concomitant]
  8. PRAMIPEXOLE DIHYDROCHLORIDE [Concomitant]
  9. PREDNISONE [Concomitant]
  10. XANAX [Concomitant]
  11. CLARITIN-D [Concomitant]
  12. TEGRETOL [Concomitant]
  13. FIORICET [Concomitant]
  14. ELAVIL [Concomitant]
  15. VIOXX [Concomitant]
  16. PROZAC [Concomitant]
  17. ADVIL LIQUI-GELS [Concomitant]
  18. FLEXERIL [Concomitant]
  19. NORFLEX [Concomitant]
  20. KEFLEX [Concomitant]
  21. SINEMET [Concomitant]
  22. FLONASE [Concomitant]
  23. CEFTIN [Concomitant]
  24. MIDRIN [Concomitant]
  25. CAFFEINE [Concomitant]
  26. MARIJUANA [Concomitant]
  27. VISTARIL [Concomitant]
  28. KETOPROFEN [Concomitant]
  29. LORATADINE [Concomitant]
  30. CLINDAMYCIN HYDROCHLORIDE [Concomitant]
  31. NORGESIC [Concomitant]
  32. GUAIFENESIN [Concomitant]
  33. CLONAZEPAM [Concomitant]
  34. EFFEXOR [Concomitant]
  35. ALPRAZOLAM [Concomitant]
  36. BACTROBAN [Concomitant]
  37. ENOVID-E [Concomitant]
  38. LIBRAX [Concomitant]
  39. ANAPROX [Concomitant]
  40. ZOLOFT [Concomitant]
  41. PAXIL [Concomitant]

REACTIONS (42)
  - ACANTHOMA [None]
  - ALANINE AMINOTRANSFERASE INCREASED [None]
  - ASPARTATE AMINOTRANSFERASE INCREASED [None]
  - ATRIOVENTRICULAR BLOCK COMPLETE [None]
  - BLOOD ALKALINE PHOSPHATASE INCREASED [None]
  - BLOOD BILIRUBIN INCREASED [None]
  - BLOOD IRON INCREASED [None]
  - CAROTID BRUIT [None]
  - CERVICAL CYST [None]
  - CHOLESTASIS [None]
  - CHRONIC OBSTRUCTIVE PULMONARY DISEASE [None]
  - CONJUNCTIVAL HAEMORRHAGE [None]
  - CORONARY ARTERY DISEASE [None]
  - CORONARY ARTERY STENOSIS [None]
  - DIZZINESS [None]
  - DYSPNOEA EXERTIONAL [None]
  - EPICONDYLITIS [None]
  - EPISTAXIS [None]
  - FACET JOINT SYNDROME [None]
  - FATIGUE [None]
  - HEADACHE [None]
  - HYPERKERATOSIS [None]
  - HYPERLIPIDAEMIA [None]
  - INTERSTITIAL LUNG DISEASE [None]
  - INTERVERTEBRAL DISC PROTRUSION [None]
  - LOBAR PNEUMONIA [None]
  - MITRAL VALVE DISEASE MIXED [None]
  - MITRAL VALVE INCOMPETENCE [None]
  - MITRAL VALVE REPLACEMENT [None]
  - MITRAL VALVE STENOSIS [None]
  - NASAL DISCOMFORT [None]
  - OBESITY [None]
  - OSTEOARTHRITIS [None]
  - PERICARDIAL EFFUSION [None]
  - PLEURISY [None]
  - PULMONARY HYPERTENSION [None]
  - ROTATOR CUFF SYNDROME [None]
  - SINUSITIS [None]
  - SLEEP DISORDER [None]
  - TRICUSPID VALVE INCOMPETENCE [None]
  - TRICUSPID VALVE STENOSIS [None]
  - URINARY INCONTINENCE [None]
